FAERS Safety Report 14172651 (Version 1)
Quarter: 2017Q4

REPORT INFORMATION
  Report Type: Spontaneous
  Country: US (occurrence: US)
  Receive Date: 20171108
  Receipt Date: 20171108
  Transmission Date: 20180321
  Serious: Yes (Life-Threatening)
  Sender: FDA-Public Use
  Company Number: None

PATIENT
  Age: 63 Year
  Sex: Female

DRUGS (1)
  1. HEPARIN [Suspect]
     Active Substance: HEPARIN SODIUM

REACTIONS (7)
  - Cough [None]
  - Hypotension [None]
  - Haematoma [None]
  - Nausea [None]
  - Pallor [None]
  - Bradycardia [None]
  - Hyperhidrosis [None]

NARRATIVE: CASE EVENT DATE: 20170808
